FAERS Safety Report 18532077 (Version 2)
Quarter: 2021Q1

REPORT INFORMATION
  Report Type: Report from Study
  Country: IL (occurrence: IL)
  Receive Date: 20201123
  Receipt Date: 20210112
  Transmission Date: 20210419
  Serious: Yes (Other)
  Sender: FDA-Public Use
  Company Number: IL-AMGEN-ISRCT2020187991

PATIENT
  Age: 71 Year
  Sex: Female

DRUGS (1)
  1. ETANERCEPT [Suspect]
     Active Substance: ETANERCEPT
     Indication: PRODUCT USED FOR UNKNOWN INDICATION
     Dosage: 50 MILLIGRAM, QWK
     Route: 058

REACTIONS (5)
  - Drug ineffective [Unknown]
  - Headache [Unknown]
  - Pneumonia [Unknown]
  - Pain [Unknown]
  - Dry mouth [Unknown]
